FAERS Safety Report 10097394 (Version 2)
Quarter: 2014Q2

REPORT INFORMATION
  Report Type: Spontaneous
  Country: US (occurrence: US)
  Receive Date: 20140423
  Receipt Date: 20140506
  Transmission Date: 20141212
  Serious: Yes (Death)
  Sender: FDA-Public Use
  Company Number: US-BAXTER-2014BAX019042

PATIENT
  Sex: Male

DRUGS (4)
  1. DIANEAL LOW CALCIUM [Suspect]
     Indication: RENAL FAILURE CHRONIC
     Dosage: 2 BAGS PER DAY
     Route: 033
     Dates: end: 20140409
  2. DIANEAL LOW CALCIUM [Suspect]
     Indication: PERITONEAL DIALYSIS
  3. EXTRANEAL [Suspect]
     Indication: RENAL FAILURE CHRONIC
     Dosage: 1 BAG PER DAY
     Route: 033
     Dates: end: 20140409
  4. EXTRANEAL [Suspect]
     Indication: PERITONEAL DIALYSIS

REACTIONS (2)
  - Peripheral circulatory failure [Fatal]
  - Renal failure chronic [Fatal]
